FAERS Safety Report 11458672 (Version 1)
Quarter: 2015Q3

REPORT INFORMATION
  Report Type: Spontaneous
  Country: ES (occurrence: ES)
  Receive Date: 20150904
  Receipt Date: 20150904
  Transmission Date: 20151125
  Serious: Yes (Hospitalization)
  Sender: FDA-Public Use
  Company Number: ES-MYLANLABS-2015M1029696

PATIENT

DRUGS (5)
  1. FENTANYL. [Suspect]
     Active Substance: FENTANYL
     Indication: LABOUR PAIN
     Dosage: 50 MICROG
     Route: 008
  2. BUPIVACAINE [Suspect]
     Active Substance: BUPIVACAINE
     Indication: LABOUR PAIN
     Dosage: 3ML (CONC: 0.25%)
     Route: 008
  3. BUPIVACAINE [Suspect]
     Active Substance: BUPIVACAINE
     Dosage: BOLUS OF 10ML (CONC: 0.0625%)
     Route: 008
  4. BUPIVACAINE [Suspect]
     Active Substance: BUPIVACAINE
     Dosage: INFUSION AT 12 ML/HOUR (CONC: 0.0625%)
     Route: 065
  5. FENTANYL. [Suspect]
     Active Substance: FENTANYL
     Dosage: 1.5 MICROG/ML (INFUSION AT 12 ML/HOUR)
     Route: 065

REACTIONS (4)
  - Subarachnoid haemorrhage [Recovered/Resolved]
  - Cerebral haemorrhage [Recovered/Resolved]
  - Exposure during pregnancy [Recovered/Resolved]
  - Post lumbar puncture syndrome [Recovered/Resolved]
